FAERS Safety Report 11169389 (Version 3)
Quarter: 2015Q3

REPORT INFORMATION
  Report Type: Spontaneous
  Country: US (occurrence: US)
  Receive Date: 20150605
  Receipt Date: 20150722
  Transmission Date: 20151125
  Serious: Yes (Death, Other)
  Sender: FDA-Public Use
  Company Number: US-GLAXOSMITHKLINE-US2015GSK064776

PATIENT
  Sex: Female
  Weight: 53.11 kg

DRUGS (1)
  1. VOTRIENT [Suspect]
     Active Substance: PAZOPANIB HYDROCHLORIDE
     Indication: SOFT TISSUE SARCOMA
     Dosage: 800 MG, BID
     Route: 048
     Dates: start: 20150317, end: 20150416

REACTIONS (3)
  - Hospice care [Unknown]
  - Leiomyosarcoma metastatic [Fatal]
  - Disease progression [Fatal]
